FAERS Safety Report 9941478 (Version 1)
Quarter: 2014Q1

REPORT INFORMATION
  Report Type: Report from Study
  Country: US (occurrence: US)
  Receive Date: 20140303
  Receipt Date: 20140303
  Transmission Date: 20141002
  Serious: No
  Sender: FDA-Public Use
  Company Number: US-ABBVIE-13P-163-1043899-00

PATIENT
  Age: 32 Year
  Sex: Female
  Weight: 68.1 kg

DRUGS (1)
  1. HUMIRA [Suspect]
     Indication: CROHN^S DISEASE
     Dates: start: 2009

REACTIONS (5)
  - Diarrhoea [Recovering/Resolving]
  - Toothache [Not Recovered/Not Resolved]
  - Dental caries [Not Recovered/Not Resolved]
  - Sinusitis [Recovered/Resolved]
  - Fungal infection [Recovering/Resolving]
